FAERS Safety Report 9699119 (Version 2)
Quarter: 2014Q1

REPORT INFORMATION
  Report Type: Spontaneous
  Country: US (occurrence: US)
  Receive Date: 20131120
  Receipt Date: 20140203
  Transmission Date: 20141002
  Serious: Yes (Hospitalization, Other)
  Sender: FDA-Public Use
  Company Number: US-PFIZER INC-2013325726

PATIENT
  Sex: Female

DRUGS (3)
  1. XANAX [Suspect]
     Indication: PAIN
     Dosage: 2 MG, UNK
  2. OXYCODONE HYDROCHLORIDE [Suspect]
     Indication: PAIN
     Dosage: UNK
  3. FENTANYL [Suspect]
     Indication: PAIN
     Dosage: UNK

REACTIONS (8)
  - Traumatic lung injury [Unknown]
  - Road traffic accident [Unknown]
  - Rib fracture [Unknown]
  - Upper limb fracture [Unknown]
  - Pelvic fracture [Unknown]
  - Loss of consciousness [Unknown]
  - Drug abuse [Unknown]
  - Off label use [Unknown]
